FAERS Safety Report 8401124-4 (Version None)
Quarter: 2012Q2

REPORT INFORMATION
  Report Type: 
  Country: None (occurrence: None)
  Receive Date: 20120601
  Receipt Date: 20120530
  Transmission Date: 20120825
  Serious: No
  Sender: FDA-Public Use
  Company Number: US-PFIZER INC-2012131338

PATIENT
  Sex: Male
  Weight: 147 kg

DRUGS (1)
  1. CHANTIX [Suspect]
     Indication: SMOKING CESSATION THERAPY
     Dosage: UNK
     Dates: start: 20120301, end: 20120501

REACTIONS (2)
  - ABDOMINAL PAIN UPPER [None]
  - ABNORMAL DREAMS [None]
